FAERS Safety Report 15052916 (Version 2)
Quarter: 2018Q2

REPORT INFORMATION
  Report Type: Spontaneous
  Country: BR (occurrence: BR)
  Receive Date: 20180622
  Receipt Date: 20180629
  Transmission Date: 20180711
  Serious: Yes (Hospitalization)
  Sender: FDA-Public Use
  Company Number: BR-PFIZER INC-2018250734

PATIENT
  Age: 44 Year
  Sex: Male
  Weight: 92 kg

DRUGS (4)
  1. IDARUBICIN HCL [Suspect]
     Active Substance: IDARUBICIN HYDROCHLORIDE
     Indication: ACUTE LYMPHOCYTIC LEUKAEMIA
     Dosage: 20 MG, UNK (DURING 3 DAYS)
     Dates: start: 20180216, end: 20180219
  2. G-CSF [Suspect]
     Active Substance: GRANULOCYTE COLONY-STIMULATING FACTOR NOS
     Indication: ACUTE LYMPHOCYTIC LEUKAEMIA
     Dosage: 300 UG, UNK
     Dates: start: 20180222, end: 20180222
  3. FLUDARABINE PHOSPHATE. [Suspect]
     Active Substance: FLUDARABINE PHOSPHATE
     Indication: ACUTE LYMPHOCYTIC LEUKAEMIA
     Dosage: 60 MG, UNK (DURING 5 DAYS)
     Dates: start: 20180216, end: 20180222
  4. CYTARABINE. [Suspect]
     Active Substance: CYTARABINE
     Indication: ACUTE LYMPHOCYTIC LEUKAEMIA
     Dosage: 4000 MG, UNK
     Dates: start: 20180216, end: 20180222

REACTIONS (3)
  - Neutropenic colitis [Recovered/Resolved]
  - Drug ineffective [Unknown]
  - Sepsis [Recovered/Resolved]
